FAERS Safety Report 4454837-3 (Version None)
Quarter: 2004Q3

REPORT INFORMATION
  Report Type: 
  Country: None (occurrence: None)
  Receive Date: 20040921
  Receipt Date: 20040917
  Transmission Date: 20050211
  Serious: Yes (Hospitalization, Other)
  Sender: FDA-Public Use
  Company Number: US-GLAXOSMITHKLINE-A0526194A

PATIENT
  Age: 66 Year
  Sex: Female

DRUGS (4)
  1. NAVELBINE [Suspect]
     Indication: BREAST CANCER
     Route: 042
     Dates: start: 20040611, end: 20040901
  2. TAXOTERE [Concomitant]
  3. HERCEPTIN [Concomitant]
  4. ANTIEMETIC [Concomitant]

REACTIONS (1)
  - LUNG INFILTRATION [None]
